FAERS Safety Report 11805173 (Version 1)
Quarter: 2015Q4

REPORT INFORMATION
  Report Type: Spontaneous
  Country: US (occurrence: None)
  Receive Date: 20151203
  Receipt Date: 20151203
  Transmission Date: 20160305
  Serious: No
  Sender: FDA-Public Use
  Company Number: None

PATIENT
  Age: 59 Year
  Sex: Female

DRUGS (21)
  1. EXCEDRIN [Concomitant]
     Active Substance: ACETAMINOPHEN\ASPIRIN\CAFFEINE
  2. HYDROXYZINE [Concomitant]
     Active Substance: HYDROXYZINE\HYDROXYZINE HYDROCHLORIDE
  3. ZOLPIDEM [Concomitant]
     Active Substance: ZOLPIDEM\ZOLPIDEM TARTRATE
  4. AROMASIN [Concomitant]
     Active Substance: EXEMESTANE
  5. SIMVASTATIN. [Concomitant]
     Active Substance: SIMVASTATIN
  6. EFFEXOR XR [Concomitant]
     Active Substance: VENLAFAXINE HYDROCHLORIDE
  7. PANTOPRAZOLE [Concomitant]
     Active Substance: PANTOPRAZOLE SODIUM
  8. BENZONATATE. [Concomitant]
     Active Substance: BENZONATATE
  9. DOXEPIN HCL [Concomitant]
     Active Substance: DOXEPIN HYDROCHLORIDE
  10. OXYCODONE AND ACETAMINOPHEN [Concomitant]
     Active Substance: ACETAMINOPHEN\OXYCODONE\OXYCODONE HYDROCHLORIDE
  11. PERCOCET [Concomitant]
     Active Substance: ACETAMINOPHEN\OXYCODONE HYDROCHLORIDE
  12. XANAX [Concomitant]
     Active Substance: ALPRAZOLAM
  13. AFINITOR [Suspect]
     Active Substance: EVEROLIMUS
     Indication: NEOPLASM MALIGNANT
     Route: 048
     Dates: start: 20151002
  14. ALPRAZOLAM. [Concomitant]
     Active Substance: ALPRAZOLAM
  15. DULOXETINE. [Concomitant]
     Active Substance: DULOXETINE
  16. ONDANSETRON [Concomitant]
     Active Substance: ONDANSETRON
  17. RELPAX [Concomitant]
     Active Substance: ELETRIPTAN HYDROBROMIDE
  18. ASPIRIN. [Concomitant]
     Active Substance: ASPIRIN
  19. CYMBALTA [Concomitant]
     Active Substance: DULOXETINE HYDROCHLORIDE
  20. HYDROXYZ HCL [Concomitant]
     Active Substance: HYDROXYZINE HYDROCHLORIDE
  21. VITAMIN D3 [Concomitant]
     Active Substance: CHOLECALCIFEROL

REACTIONS (7)
  - Musculoskeletal pain [None]
  - Cough [None]
  - Stomatitis [None]
  - Skin exfoliation [None]
  - Back pain [None]
  - Insomnia [None]
  - Skin lesion [None]
